FAERS Safety Report 17631718 (Version 1)
Quarter: 2020Q2

REPORT INFORMATION
  Report Type: Spontaneous
  Country: US (occurrence: US)
  Receive Date: 20200406
  Receipt Date: 20200406
  Transmission Date: 20200713
  Serious: No
  Sender: FDA-Public Use
  Company Number: None

PATIENT
  Age: 74 Year
  Sex: Female
  Weight: 47.93 kg

DRUGS (7)
  1. AMLODIPINE 2.5 MG, ORAL [Concomitant]
  2. IBRANCE 125MG, ORAL [Concomitant]
     Dates: start: 20150415, end: 20150718
  3. NIFEDIPINE ER, 30 MG, ORAL [Concomitant]
  4. IBRANCE [Suspect]
     Active Substance: PALBOCICLIB
     Indication: BREAST CANCER
     Route: 048
     Dates: start: 20191215, end: 20200406
  5. IBRANCE 100MG, ORAL [Concomitant]
     Dates: start: 20150718, end: 20171018
  6. CYMBALTA 60MG, ORAL [Concomitant]
  7. LETROZOLE 2.5 MG, ORAL [Concomitant]
     Dates: start: 20150427

REACTIONS (2)
  - Influenza [None]
  - Therapy interrupted [None]

NARRATIVE: CASE EVENT DATE: 20200406
